FAERS Safety Report 9957025 (Version 2)
Quarter: 2015Q1

REPORT INFORMATION
  Report Type: Report from Study
  Country: US (occurrence: US)
  Receive Date: 20140304
  Receipt Date: 20150217
  Transmission Date: 20150721
  Serious: No
  Sender: FDA-Public Use
  Company Number: US-ABBVIE-13P-163-1096504-00

PATIENT
  Age: 34 Year
  Sex: Male

DRUGS (6)
  1. HUMIRA [Suspect]
     Active Substance: ADALIMUMAB
     Indication: CROHN^S DISEASE
     Dates: start: 20130421
  2. CIPROFLOXACIN. [Concomitant]
     Active Substance: CIPROFLOXACIN
     Indication: CROHN^S DISEASE
     Dosage: 50 MG EVERY DAY FOR CROHNS
  3. BUDESONIDE. [Concomitant]
     Active Substance: BUDESONIDE
     Indication: CROHN^S DISEASE
  4. NEXIUM [Concomitant]
     Active Substance: ESOMEPRAZOLE MAGNESIUM
     Indication: GASTROOESOPHAGEAL REFLUX DISEASE
  5. AZATHIOPRINE. [Concomitant]
     Active Substance: AZATHIOPRINE
     Indication: CROHN^S DISEASE
  6. HUMIRA [Suspect]
     Active Substance: ADALIMUMAB
     Dates: start: 20140309

REACTIONS (6)
  - Drug effect decreased [Not Recovered/Not Resolved]
  - Injection site bruising [Not Recovered/Not Resolved]
  - Injection site pain [Recovered/Resolved]
  - Injection site pain [Not Recovered/Not Resolved]
  - Injection site pain [Recovered/Resolved]
  - Injection site haemorrhage [Recovered/Resolved]

NARRATIVE: CASE EVENT DATE: 201302
